FAERS Safety Report 10716676 (Version 1)
Quarter: 2015Q1

REPORT INFORMATION
  Report Type: Spontaneous
  Country: US (occurrence: None)
  Receive Date: 20150115
  Receipt Date: 20150115
  Transmission Date: 20150721
  Serious: Yes (Other)
  Sender: FDA-Public Use
  Company Number: None

PATIENT
  Age: 62 Year
  Sex: Female
  Weight: 62.6 kg

DRUGS (1)
  1. TRANYLCYPROMINE [Suspect]
     Active Substance: TRANYLCYPROMINE
     Indication: DEPRESSION
     Route: 048
     Dates: start: 20141207, end: 20150103

REACTIONS (3)
  - Depression [None]
  - Product substitution issue [None]
  - Night sweats [None]

NARRATIVE: CASE EVENT DATE: 20141207
